FAERS Safety Report 7214819-5 (Version None)
Quarter: 2011Q1

REPORT INFORMATION
  Report Type: 
  Country: None (occurrence: None)
  Receive Date: 20110107
  Receipt Date: 20100312
  Transmission Date: 20110831
  Serious: No
  Sender: FDA-Public Use
  Company Number: A0850006A

PATIENT
  Sex: Female

DRUGS (2)
  1. LOVAZA [Suspect]
     Route: 048
     Dates: start: 20080801
  2. UNKNOWN [Concomitant]

REACTIONS (1)
  - FREQUENT BOWEL MOVEMENTS [None]
